FAERS Safety Report 5948627-X (Version None)
Quarter: 2008Q4

REPORT INFORMATION
  Report Type: 
  Country: None (occurrence: None)
  Receive Date: 20081021
  Receipt Date: 20080505
  Transmission Date: 20090506
  Serious: Yes (Other)
  Sender: FDA-Public Use
  Company Number: HQWYE003417JUL06

PATIENT
  Age: 55 Year
  Sex: Female

DRUGS (5)
  1. PREMARIN [Suspect]
  2. ESTRATEST [Suspect]
  3. MEDROXYPROGESTERONE [Suspect]
  4. PREMPRO [Suspect]
  5. PROVERA [Suspect]

REACTIONS (1)
  - OVARIAN CANCER METASTATIC [None]
